FAERS Safety Report 10005942 (Version 1)
Quarter: 2014Q1

REPORT INFORMATION
  Report Type: Report from Study
  Country: IT (occurrence: IT)
  Receive Date: 20140313
  Receipt Date: 20140313
  Transmission Date: 20141002
  Serious: Yes (Other)
  Sender: FDA-Public Use
  Company Number: IT-UCBSA-114553

PATIENT
  Sex: 0

DRUGS (1)
  1. LEVETIRACETAM [Suspect]
     Indication: STATUS EPILEPTICUS
     Dosage: IV INFUSION BETWEEN 10-60 MINUTES  UP TO 3000 MG
     Route: 042

REACTIONS (2)
  - Respiratory failure [Unknown]
  - Convulsion [Unknown]
